FAERS Safety Report 19004249 (Version 3)
Quarter: 2023Q2

REPORT INFORMATION
  Report Type: Other
  Country: US (occurrence: None)
  Receive Date: 20210313
  Receipt Date: 20230504
  Transmission Date: 20230721
  Serious: Yes (Hospitalization)
  Sender: FDA-Public Use
  Company Number: US-ROCHE-2787941

PATIENT
  Sex: Male

DRUGS (4)
  1. OCREVUS [Suspect]
     Active Substance: OCRELIZUMAB
     Indication: Relapsing multiple sclerosis
     Dosage: 300 MG IV ON DAY 1, 300 MG IV ON DAY 15
     Route: 042
     Dates: start: 20180724
  2. OCREVUS [Suspect]
     Active Substance: OCRELIZUMAB
     Dosage: 300 MG ONCE IN 2 WEEKS AND THEN 600 MG ONCE IN 6 MONTHS?DATE OF TREATMENT; 01/AUG/2019, 16/JAN/2020,
     Route: 042
     Dates: start: 20190124
  3. RITUXAN [Suspect]
     Active Substance: RITUXIMAB
     Indication: Off label use
     Route: 065
  4. RITUXAN [Suspect]
     Active Substance: RITUXIMAB
     Indication: Multiple sclerosis

REACTIONS (6)
  - COVID-19 [Recovered/Resolved]
  - Infection [Recovered/Resolved]
  - Heart rate increased [Recovered/Resolved]
  - Off label use [Unknown]
  - Urticaria [Recovered/Resolved]
  - Pruritus [Recovered/Resolved]

NARRATIVE: CASE EVENT DATE: 20190101
